FAERS Safety Report 10739134 (Version 2)
Quarter: 2015Q1

REPORT INFORMATION
  Report Type: Spontaneous
  Country: US (occurrence: US)
  Receive Date: 20150126
  Receipt Date: 20150206
  Transmission Date: 20150721
  Serious: Yes (Hospitalization)
  Sender: FDA-Public Use
  Company Number: US-ACTELION-A-US2014-104770

PATIENT
  Age: 85 Year
  Sex: Female

DRUGS (23)
  1. TRACLEER [Suspect]
     Active Substance: BOSENTAN\BOSENTAN MONOHYDRATE
     Dosage: 62.5 MG, BID
     Route: 048
     Dates: start: 2004
  2. METFORMIN [Concomitant]
     Active Substance: METFORMIN HYDROCHLORIDE
  3. ADVAIR HFA [Concomitant]
     Active Substance: FLUTICASONE PROPIONATE\SALMETEROL XINAFOATE
  4. TRAMADOL [Concomitant]
     Active Substance: TRAMADOL
  5. VITAMIN D [Concomitant]
     Active Substance: CHOLECALCIFEROL
  6. METOLAZONE. [Concomitant]
     Active Substance: METOLAZONE
  7. TRACLEER [Suspect]
     Active Substance: BOSENTAN\BOSENTAN MONOHYDRATE
     Indication: PULMONARY HYPERTENSION
     Dosage: 125 MG, BID
     Route: 048
  8. ZANTAC [Concomitant]
     Active Substance: RANITIDINE HYDROCHLORIDE
  9. DOXYCYCLINE. [Concomitant]
     Active Substance: DOXYCYCLINE
  10. SYNTHROID [Concomitant]
     Active Substance: LEVOTHYROXINE SODIUM
  11. MAGNESIUM [Concomitant]
     Active Substance: MAGNESIUM
  12. TYVASO [Concomitant]
     Active Substance: TREPROSTINIL
  13. LANTUS [Concomitant]
     Active Substance: INSULIN GLARGINE
  14. VITAMIN C [Concomitant]
     Active Substance: ASCORBIC ACID
  15. RIOCIGUAT [Suspect]
     Active Substance: RIOCIGUAT
     Indication: PRODUCT USED FOR UNKNOWN INDICATION
     Dosage: UNK
     Route: 048
  16. PRANDIN [Concomitant]
     Active Substance: REPAGLINIDE
  17. FERROUS SULFATE [Concomitant]
     Active Substance: FERROUS SULFATE\FERROUS SULFATE, DRIED
  18. FLUTICASONE [Concomitant]
     Active Substance: FLUTICASONE\FLUTICASONE PROPIONATE
  19. NEURONTIN [Concomitant]
     Active Substance: GABAPENTIN
  20. COUMADIN [Concomitant]
     Active Substance: WARFARIN SODIUM
  21. CARDIZEM [Concomitant]
     Active Substance: DILTIAZEM HYDROCHLORIDE
  22. OMEPRAZOLE. [Concomitant]
     Active Substance: OMEPRAZOLE
  23. PROAIR HFA [Concomitant]
     Active Substance: ALBUTEROL SULFATE

REACTIONS (11)
  - Oedema peripheral [Unknown]
  - Fatigue [Unknown]
  - Cardiac failure congestive [Recovering/Resolving]
  - Diverticulitis [Recovering/Resolving]
  - Diarrhoea [Unknown]
  - Dyspnoea [Recovering/Resolving]
  - Dizziness [Unknown]
  - Oedema [Not Recovered/Not Resolved]
  - Vertigo [Unknown]
  - Frequent bowel movements [Unknown]
  - Weight increased [Not Recovered/Not Resolved]
